FAERS Safety Report 13255317 (Version 1)
Quarter: 2017Q1

REPORT INFORMATION
  Report Type: Spontaneous
  Country: US (occurrence: US)
  Receive Date: 20170221
  Receipt Date: 20170221
  Transmission Date: 20170428
  Serious: No
  Sender: FDA-Public Use
  Company Number: US-JNJFOC-20170206407

PATIENT
  Sex: Female

DRUGS (1)
  1. INVEGA SUSTENNA [Suspect]
     Active Substance: PALIPERIDONE PALMITATE
     Indication: BIPOLAR DISORDER
     Route: 030

REACTIONS (10)
  - Restless legs syndrome [Unknown]
  - Fatigue [Unknown]
  - Off label use [Unknown]
  - Amenorrhoea [Unknown]
  - Breast pain [Unknown]
  - Muscle twitching [Unknown]
  - Feeling abnormal [Unknown]
  - Product use issue [Unknown]
  - Insomnia [Unknown]
  - Breast discharge [Unknown]
